FAERS Safety Report 6280499-9 (Version None)
Quarter: 2009Q3

REPORT INFORMATION
  Report Type: 
  Country: None (occurrence: None)
  Receive Date: 20090724
  Receipt Date: 20080728
  Transmission Date: 20100115
  Serious: No
  Sender: FDA-Public Use
  Company Number: A0741208A

PATIENT
  Sex: Male

DRUGS (3)
  1. AVANDIA [Suspect]
     Indication: BLOOD GLUCOSE
     Route: 048
  2. GLYBURIDE [Suspect]
     Indication: BLOOD GLUCOSE
  3. METFORMIN HCL [Suspect]
     Indication: BLOOD GLUCOSE

REACTIONS (1)
  - DRUG INEFFECTIVE [None]
